FAERS Safety Report 7966543-9 (Version None)
Quarter: 2011Q4

REPORT INFORMATION
  Report Type: 
  Country: None (occurrence: None)
  Receive Date: 20111208
  Receipt Date: 20111129
  Transmission Date: 20120403
  Serious: Yes (Hospitalization, Other)
  Sender: FDA-Public Use
  Company Number: US-ASTRAZENECA-2011SE72544

PATIENT
  Age: 48 Year
  Sex: Female

DRUGS (2)
  1. NEXIUM [Suspect]
     Route: 048
  2. SYMBICORT [Suspect]
     Route: 055

REACTIONS (9)
  - ROAD TRAFFIC ACCIDENT [None]
  - ALOPECIA [None]
  - PNEUMONIA [None]
  - UPPER LIMB FRACTURE [None]
  - SLEEP DISORDER DUE TO A GENERAL MEDICAL CONDITION [None]
  - BACK PAIN [None]
  - CLAVICLE FRACTURE [None]
  - ABDOMINAL HERNIA [None]
  - STRESS [None]
